FAERS Safety Report 15492368 (Version 7)
Quarter: 2020Q2

REPORT INFORMATION
  Report Type: Spontaneous
  Country: US (occurrence: US)
  Receive Date: 20181012
  Receipt Date: 20200604
  Transmission Date: 20200713
  Serious: Yes (Other)
  Sender: FDA-Public Use
  Company Number: US-PFIZER INC-2018246981

PATIENT
  Age: 70 Year
  Sex: Female

DRUGS (1)
  1. XELJANZ [Suspect]
     Active Substance: TOFACITINIB CITRATE
     Dosage: 5 MG, UNK
     Dates: end: 201801

REACTIONS (6)
  - Immunosuppression [Unknown]
  - Stress [Unknown]
  - Infection [Unknown]
  - Fall [Unknown]
  - Skin cancer [Unknown]
  - Foot fracture [Unknown]
